FAERS Safety Report 9619460 (Version 2)
Quarter: 2013Q4

REPORT INFORMATION
  Report Type: Spontaneous
  Country: NL (occurrence: NL)
  Receive Date: 20131014
  Receipt Date: 20131101
  Transmission Date: 20140711
  Serious: Yes (Hospitalization)
  Sender: FDA-Public Use
  Company Number: NL-ABBVIE-13P-114-1154779-00

PATIENT
  Age: 57 Year
  Sex: Female
  Weight: 68.5 kg

DRUGS (1)
  1. HUMIRA [Suspect]
     Indication: PSORIASIS
     Route: 058
     Dates: start: 20091002, end: 20130902

REACTIONS (9)
  - Urine viscosity increased [Unknown]
  - Kidney infection [Recovered/Resolved]
  - Chills [Unknown]
  - Renal impairment [Unknown]
  - Urine output decreased [Unknown]
  - Micturition disorder [Unknown]
  - Nephrolithiasis [Recovered/Resolved]
  - Urinary tract infection [Recovered/Resolved]
  - Ureteric obstruction [Unknown]
